FAERS Safety Report 24573170 (Version 2)
Quarter: 2025Q3

REPORT INFORMATION
  Report Type: Spontaneous
  Country: GB (occurrence: GB)
  Receive Date: 20241101
  Receipt Date: 20250709
  Transmission Date: 20251021
  Serious: Yes (Hospitalization, Other)
  Sender: NOVO NORDISK
  Company Number: GB-NOVOPROD-1306987

PATIENT
  Sex: Female

DRUGS (1)
  1. SAXENDA [Suspect]
     Active Substance: LIRAGLUTIDE
     Indication: Weight control

REACTIONS (5)
  - Circulatory collapse [Unknown]
  - Cholecystectomy [Unknown]
  - Pancreatitis acute [Unknown]
  - General physical health deterioration [Unknown]
  - Irritable bowel syndrome [Not Recovered/Not Resolved]
